FAERS Safety Report 8152477-6 (Version None)
Quarter: 2012Q1

REPORT INFORMATION
  Report Type: 
  Country: None (occurrence: None)
  Receive Date: 20120221
  Receipt Date: 20120215
  Transmission Date: 20120608
  Serious: Yes (Other)
  Sender: FDA-Public Use
  Company Number: US-BAYER-2012-016726

PATIENT

DRUGS (1)
  1. YAZ [Suspect]

REACTIONS (2)
  - DEEP VEIN THROMBOSIS [None]
  - PELVIC PAIN [None]
